FAERS Safety Report 18504564 (Version 3)
Quarter: 2021Q2

REPORT INFORMATION
  Report Type: Report from Study
  Country: US (occurrence: US)
  Receive Date: 20201114
  Receipt Date: 20210520
  Transmission Date: 20210717
  Serious: Yes (Hospitalization, Other)
  Sender: FDA-Public Use
  Company Number: NVSC2020US300314

PATIENT
  Age: 67 Year
  Sex: Female

DRUGS (3)
  1. KISQALI [Suspect]
     Active Substance: RIBOCICLIB
     Indication: BREAST CANCER FEMALE
     Dosage: UNK
     Route: 048
  2. KISQALI [Suspect]
     Active Substance: RIBOCICLIB
     Indication: BREAST CANCER METASTATIC
     Dosage: 400 MG, QD
     Route: 048
  3. KISQALI [Suspect]
     Active Substance: RIBOCICLIB
     Indication: NEOPLASM MALIGNANT

REACTIONS (10)
  - Bone cancer [Unknown]
  - Nausea [Recovered/Resolved]
  - Fall [Unknown]
  - Facial bones fracture [Unknown]
  - Pulmonary oedema [Unknown]
  - Vertigo [Unknown]
  - Second primary malignancy [Unknown]
  - Cough [Unknown]
  - Adverse event [Unknown]
  - Contusion [Unknown]

NARRATIVE: CASE EVENT DATE: 202103
